FAERS Safety Report 21479145 (Version 1)
Quarter: 2022Q4

REPORT INFORMATION
  Report Type: Spontaneous
  Country: FR (occurrence: FR)
  Receive Date: 20221019
  Receipt Date: 20221019
  Transmission Date: 20230113
  Serious: Yes (Hospitalization)
  Sender: FDA-Public Use
  Company Number: None

PATIENT
  Age: 71 Year
  Sex: Male
  Weight: 85 kg

DRUGS (4)
  1. CEFEPIME [Suspect]
     Active Substance: CEFEPIME HYDROCHLORIDE
     Indication: Lung disorder
     Dosage: 6 GRAM, QD, IV DRIP
     Route: 065
     Dates: start: 20220216, end: 20220222
  2. VANCOMYCIN [Suspect]
     Active Substance: VANCOMYCIN
     Indication: Blood culture positive
     Dosage: 1 GRAM, BID, 12 HOURS
     Route: 042
     Dates: start: 20220217, end: 20220222
  3. GANCICLOVIR [Concomitant]
     Active Substance: GANCICLOVIR
     Indication: Pneumonia cytomegaloviral
     Dosage: TUESDAY THURSDAY, SATURDAY, Q2D
     Route: 042
     Dates: start: 20220217
  4. ISAVUCONAZOLE [Concomitant]
     Active Substance: ISAVUCONAZOLE
     Indication: Aspergillus infection
     Dosage: 200 MILLIGRAM, QD
     Route: 042
     Dates: start: 20220203

REACTIONS (3)
  - Drug reaction with eosinophilia and systemic symptoms [Recovering/Resolving]
  - Toxic skin eruption [Recovered/Resolved]
  - Eosinophilia [Not Recovered/Not Resolved]

NARRATIVE: CASE EVENT DATE: 20220221
